FAERS Safety Report 8740146 (Version 3)
Quarter: 2013Q1

REPORT INFORMATION
  Report Type: Spontaneous
  Country: BR (occurrence: BR)
  Receive Date: 20120823
  Receipt Date: 20130214
  Transmission Date: 20140127
  Serious: Yes (Hospitalization, Other)
  Sender: FDA-Public Use
  Company Number: BR-ROCHE-1102989

PATIENT
  Age: 66 Year
  Sex: Male

DRUGS (2)
  1. XOLAIR [Suspect]
     Indication: ASTHMA
     Route: 058
  2. FORASEQ (BRAZIL) [Concomitant]
     Indication: ASTHMA
     Dosage: 12/400 UG
     Route: 065

REACTIONS (6)
  - Hypersensitivity [Unknown]
  - Asthma [Recovering/Resolving]
  - Lung disorder [Unknown]
  - Pancreatic disorder [Recovered/Resolved]
  - Cardiac valve disease [Not Recovered/Not Resolved]
  - Dyspnoea [Recovering/Resolving]
